FAERS Safety Report 8108888-8 (Version None)
Quarter: 2012Q1

REPORT INFORMATION
  Report Type: 
  Country: None (occurrence: None)
  Receive Date: 20120202
  Receipt Date: 20120130
  Transmission Date: 20120608
  Serious: Yes (Death, Congenital Anomaly)
  Sender: FDA-Public Use
  Company Number: US-GLAXOSMITHKLINE-A0963995A

PATIENT

DRUGS (1)
  1. PAXIL [Suspect]
     Indication: DEPRESSION
     Route: 064

REACTIONS (4)
  - HYPOPLASTIC LEFT HEART SYNDROME [None]
  - DEATH [None]
  - TURNER'S SYNDROME [None]
  - FOETAL EXPOSURE DURING PREGNANCY [None]
